FAERS Safety Report 7216339-0 (Version None)
Quarter: 2011Q1

REPORT INFORMATION
  Report Type: 
  Country: None (occurrence: None)
  Receive Date: 20110107
  Receipt Date: 20101223
  Transmission Date: 20110831
  Serious: Yes (Hospitalization, Other)
  Sender: FDA-Public Use
  Company Number: NO-PFIZER INC-2010115842

PATIENT
  Age: 44 Year
  Sex: Male

DRUGS (1)
  1. CHAMPIX [Suspect]
     Indication: SMOKING CESSATION THERAPY
     Dosage: UNK

REACTIONS (7)
  - FATIGUE [None]
  - CONVULSION [None]
  - OXYGEN SATURATION DECREASED [None]
  - URINARY INCONTINENCE [None]
  - NECK PAIN [None]
  - BACK PAIN [None]
  - CONFUSIONAL STATE [None]
